FAERS Safety Report 11811365 (Version 2)
Quarter: 2015Q4

REPORT INFORMATION
  Report Type: Spontaneous
  Country: US (occurrence: US)
  Receive Date: 20151208
  Receipt Date: 20151222
  Transmission Date: 20160305
  Serious: No
  Sender: FDA-Public Use
  Company Number: US-ASTRAZENECA-2015SF20202

PATIENT
  Age: 15827 Day
  Sex: Male
  Weight: 97.5 kg

DRUGS (4)
  1. BYDUREON [Suspect]
     Active Substance: EXENATIDE
     Indication: TYPE 2 DIABETES MELLITUS
     Dosage: 2 MG 4 COUNT UNKNOWN
     Route: 058
  2. CYMBALTA [Concomitant]
     Active Substance: DULOXETINE HYDROCHLORIDE
  3. NORCO [Concomitant]
     Active Substance: ACETAMINOPHEN\HYDROCODONE BITARTRATE
     Indication: PAIN
     Dosage: AS REQUIRED
  4. LYRICA [Concomitant]
     Active Substance: PREGABALIN

REACTIONS (8)
  - Product use issue [Unknown]
  - Contusion [Not Recovered/Not Resolved]
  - Headache [Not Recovered/Not Resolved]
  - Injection site nodule [Unknown]
  - Injection site pruritus [Not Recovered/Not Resolved]
  - Hypertension [Unknown]
  - Dyspepsia [Unknown]
  - Off label use [Unknown]
